FAERS Safety Report 20982790 (Version 3)
Quarter: 2022Q3

REPORT INFORMATION
  Report Type: Report from Study
  Country: US (occurrence: US)
  Receive Date: 20220620
  Receipt Date: 20220920
  Transmission Date: 20221026
  Serious: Yes (Hospitalization, Other)
  Sender: FDA-Public Use
  Company Number: US-BRISTOL-MYERS SQUIBB COMPANY-2022-053896

PATIENT
  Age: 62 Year
  Sex: Female
  Weight: 83.59 kg

DRUGS (2)
  1. POMALYST [Suspect]
     Active Substance: POMALIDOMIDE
     Indication: Plasma cell myeloma
     Dosage: DAILY 21 DAYS?31-OCT-2025?31-JAN-2026
     Route: 048
  2. BUMETANIDE [Suspect]
     Active Substance: BUMETANIDE
     Indication: Product used for unknown indication
     Route: 065

REACTIONS (4)
  - Atrial fibrillation [Unknown]
  - Abdominal pain upper [Unknown]
  - Fluid retention [Unknown]
  - Joint swelling [Recovering/Resolving]
